FAERS Safety Report 16430123 (Version 2)
Quarter: 2019Q4

REPORT INFORMATION
  Report Type: Spontaneous
  Country: DE (occurrence: DE)
  Receive Date: 20190614
  Receipt Date: 20191001
  Transmission Date: 20200122
  Serious: Yes (Other)
  Sender: FDA-Public Use
  Company Number: DE-SA-2019SA156143

PATIENT
  Age: 20 Year
  Sex: Male
  Weight: 71 kg

DRUGS (3)
  1. CEREZYME [Suspect]
     Active Substance: IMIGLUCERASE
     Dosage: 2800 IU, QOW
     Route: 042
     Dates: start: 201804
  2. CERDELGA [Suspect]
     Active Substance: ELIGLUSTAT
     Indication: GAUCHER^S DISEASE
     Dosage: UNK UNK, UNK
     Route: 065
     Dates: start: 201610, end: 201801
  3. CEREZYME [Suspect]
     Active Substance: IMIGLUCERASE
     Indication: GAUCHER^S DISEASE TYPE I
     Dosage: 2800 IU, QOW
     Route: 042
     Dates: start: 200308, end: 201609

REACTIONS (2)
  - Epilepsy [Recovered/Resolved]
  - Sleep deficit [Unknown]

NARRATIVE: CASE EVENT DATE: 201807
